FAERS Safety Report 24433827 (Version 1)
Quarter: 2024Q4

REPORT INFORMATION
  Report Type: Spontaneous
  Country: US (occurrence: US)
  Receive Date: 20241014
  Receipt Date: 20241014
  Transmission Date: 20250114
  Serious: No
  Sender: SPROUT PHARMACEUTICALS, INC.
  Company Number: US-Sprout Pharmaceuticals, Inc.-2024SP000056

PATIENT
  Age: 43 Year
  Sex: Female

DRUGS (1)
  1. ADDYI [Suspect]
     Active Substance: FLIBANSERIN
     Indication: Libido decreased
     Dosage: SPROMC-3106 VERSION1
     Dates: start: 20240212, end: 20240212

REACTIONS (2)
  - Rash [Unknown]
  - Swelling face [Unknown]

NARRATIVE: CASE EVENT DATE: 20240212
